FAERS Safety Report 11983348 (Version 2)
Quarter: 2016Q2

REPORT INFORMATION
  Report Type: Spontaneous
  Country: US (occurrence: US)
  Receive Date: 20160201
  Receipt Date: 20160408
  Transmission Date: 20160815
  Serious: Yes (Other)
  Sender: FDA-Public Use
  Company Number: US-PFIZER INC-2016045387

PATIENT
  Age: 67 Year
  Sex: Male

DRUGS (11)
  1. ASPIRIN. [Concomitant]
     Active Substance: ASPIRIN
     Dosage: 81 MG, DAILY (ONE DOSAGE FORM)
     Dates: start: 20020101
  2. MECLIZINE [Concomitant]
     Active Substance: MECLIZINE HYDROCHLORIDE
     Indication: DIZZINESS
     Dosage: 25 MG, AS NEEDED (ONE DOSAGE FORM UP TO 4 TIMES DAILY)
     Dates: start: 20080613
  3. VIAGRA [Suspect]
     Active Substance: SILDENAFIL CITRATE
     Indication: SEXUAL DYSFUNCTION
     Dosage: UNK, REGULARLY
     Dates: start: 20080818, end: 20141211
  4. SIMVASTATIN. [Concomitant]
     Active Substance: SIMVASTATIN
     Dosage: 20 MG, DAILY (ONE DOSAGE FORM EVERY NIGHT AT BED TIME)
     Dates: start: 20020101
  5. COUMADIN [Concomitant]
     Active Substance: WARFARIN SODIUM
     Dosage: 1 DF, DAILY (2.5 MG 4 DAYS AND 5 MG 3 DAYS A WEEK)
     Dates: start: 20020101
  6. VIAGRA [Suspect]
     Active Substance: SILDENAFIL CITRATE
     Dosage: 50 MG, AS NEEDED (ONE DOSAGE FORM)
     Dates: start: 20080818
  7. DIOVAN [Concomitant]
     Active Substance: VALSARTAN
     Dosage: 80 MG, DAILY (DOSAGE FORM)
     Dates: start: 20040101
  8. AMBIEN [Concomitant]
     Active Substance: ZOLPIDEM TARTRATE
     Indication: INSOMNIA
     Dosage: 5 MG, AS NEEDED (ONE DOSAGE FORM)
     Dates: start: 20060101
  9. VIAGRA [Suspect]
     Active Substance: SILDENAFIL CITRATE
     Indication: ERECTILE DYSFUNCTION
     Dosage: 100 MG, AS NEEDED (HALF DOSAGE FORM)
     Dates: start: 20080925, end: 20090330
  10. ENTERIC ASPIRIN [Concomitant]
     Active Substance: ASPIRIN
     Dosage: 325 MG, UNK
     Dates: start: 20080818
  11. CALCIUM VIT D [Concomitant]
     Indication: MINERAL SUPPLEMENTATION
     Dosage: 1 DF, 2X/DAY (500 MG/200 IU)
     Dates: start: 20080925

REACTIONS (1)
  - Malignant melanoma [Unknown]

NARRATIVE: CASE EVENT DATE: 20090715
